FAERS Safety Report 6952086-8 (Version None)
Quarter: 2010Q3

REPORT INFORMATION
  Report Type: 
  Country: None (occurrence: None)
  Receive Date: 20100829
  Receipt Date: 20100427
  Transmission Date: 20110219
  Serious: No
  Sender: FDA-Public Use
  Company Number: US-ABBOTT-10P-163-0640955-00

PATIENT
  Sex: Female
  Weight: 115.77 kg

DRUGS (2)
  1. NIASPAN [Suspect]
     Indication: BLOOD CHOLESTEROL INCREASED
     Dosage: 2000 MILLIGRAM
  2. PROPRANOLOL [Concomitant]
     Indication: TREMOR

REACTIONS (2)
  - DIARRHOEA [None]
  - FLUSHING [None]
